FAERS Safety Report 13115410 (Version 1)
Quarter: 2017Q1

REPORT INFORMATION
  Report Type: Spontaneous
  Country: US (occurrence: US)
  Receive Date: 20170113
  Receipt Date: 20170113
  Transmission Date: 20170428
  Serious: No
  Sender: FDA-Public Use
  Company Number: US-ELI_LILLY_AND_COMPANY-US201701003423

PATIENT
  Sex: Female

DRUGS (1)
  1. HUMULIN 70/30 [Suspect]
     Active Substance: INSULIN HUMAN
     Indication: TYPE 2 DIABETES MELLITUS
     Dosage: 60 U, BID
     Route: 065
     Dates: end: 201612

REACTIONS (6)
  - Alopecia [Recovered/Resolved]
  - Blood glucose increased [Unknown]
  - Cyst [Recovered/Resolved]
  - Peripheral swelling [Recovered/Resolved]
  - Ear disorder [Recovered/Resolved]
  - Rash [Recovered/Resolved]
